APPROVED DRUG PRODUCT: CYCLOSPORINE
Active Ingredient: CYCLOSPORINE
Strength: 100MG/ML
Dosage Form/Route: SOLUTION;ORAL
Application: A065025 | Product #001
Applicant: ABBVIE INC
Approved: Mar 3, 2000 | RLD: No | RS: No | Type: DISCN